FAERS Safety Report 24428847 (Version 1)
Quarter: 2024Q4

REPORT INFORMATION
  Report Type: Spontaneous
  Country: US (occurrence: None)
  Receive Date: 20241011
  Receipt Date: 20241011
  Transmission Date: 20250114
  Serious: Yes (Other)
  Sender: Public
  Company Number: None

PATIENT
  Age: 72 Year
  Sex: Female
  Weight: 85.5 kg

DRUGS (1)
  1. LAGEVRIO [Suspect]
     Active Substance: MOLNUPIRAVIR
     Indication: COVID-19
     Dosage: OTHER QUANTITY : 40 CAPSULE(S);?FREQUENCY : TWICE A DAY;?
     Route: 048
     Dates: start: 20241002, end: 20241002

REACTIONS (6)
  - Heart rate increased [None]
  - Vomiting [None]
  - Diarrhoea [None]
  - Headache [None]
  - Vertigo [None]
  - Mobility decreased [None]

NARRATIVE: CASE EVENT DATE: 20241002
